FAERS Safety Report 14982419 (Version 1)
Quarter: 2018Q2

REPORT INFORMATION
  Report Type: Spontaneous
  Country: US (occurrence: US)
  Receive Date: 20180607
  Receipt Date: 20180607
  Transmission Date: 20180711
  Serious: Yes (Other)
  Sender: FDA-Public Use
  Company Number: US-PFIZER INC-2018229010

PATIENT
  Sex: Male

DRUGS (1)
  1. ADVIL LIQUI-GELS [Suspect]
     Active Substance: IBUPROFEN
     Indication: ARTHROPATHY
     Dosage: 2 DF, 2X/DAY(2 LIQUI-GELS IN THE MORNING AND 2 LIQUI-GELS AT NIGHT)

REACTIONS (1)
  - Gastric haemorrhage [Unknown]

NARRATIVE: CASE EVENT DATE: 20180601
